FAERS Safety Report 4386485-8 (Version None)
Quarter: 2004Q2

REPORT INFORMATION
  Report Type: 
  Country: None (occurrence: None)
  Receive Date: 20040629
  Receipt Date: 20001121
  Transmission Date: 20050107
  Serious: Yes (Hospitalization)
  Sender: FDA-Public Use
  Company Number: 10616738

PATIENT
  Age: 74 Year
  Sex: Male

DRUGS (2)
  1. CISPLATIN [Suspect]
     Indication: CARCINOMA
     Route: 042
     Dates: start: 20001108, end: 20001108
  2. FLUOROURACIL [Suspect]
     Indication: CARCINOMA
     Dosage: ADMINISTERED DAY 1 TO 5.
     Route: 042
     Dates: start: 20001108, end: 20001113

REACTIONS (1)
  - CARDIAC FAILURE [None]
